FAERS Safety Report 18174138 (Version 1)
Quarter: 2020Q3

REPORT INFORMATION
  Report Type: Other
  Country: CA (occurrence: CA)
  Receive Date: 20200820
  Receipt Date: 20200820
  Transmission Date: 20201103
  Serious: Yes (Life-Threatening, Hospitalization, Other)
  Sender: FDA-Public Use
  Company Number: CA-CELLTRION INC.-2020CA025400

PATIENT

DRUGS (17)
  1. MINOCIN [Concomitant]
     Active Substance: MINOCYCLINE HYDROCHLORIDE
  2. OMEGA 3 SELECT [Concomitant]
     Active Substance: FISH OIL
  3. CARBOPLATIN. [Suspect]
     Active Substance: CARBOPLATIN
     Indication: BREAST CANCER FEMALE
     Dosage: 620 MILLIGRAM
     Route: 042
  4. METFORMIN [Concomitant]
     Active Substance: METFORMIN HYDROCHLORIDE
  5. ZANTAC [Concomitant]
     Active Substance: RANITIDINE HYDROCHLORIDE
  6. ATORVASTATIN [Concomitant]
     Active Substance: ATORVASTATIN
  7. CLONAZEPAM. [Concomitant]
     Active Substance: CLONAZEPAM
  8. CYANOCOBALAMIN. [Concomitant]
     Active Substance: CYANOCOBALAMIN
  9. PARIET [Concomitant]
     Active Substance: RABEPRAZOLE SODIUM
  10. TRASTUZUMAB (UNKNOWN) [Suspect]
     Active Substance: TRASTUZUMAB
     Indication: BREAST CANCER FEMALE
     Dosage: 620 MILLIGRAM
     Route: 042
  11. NIFEDIPINE. [Concomitant]
     Active Substance: NIFEDIPINE
  12. DOCETAXEL. [Suspect]
     Active Substance: DOCETAXEL
     Indication: BREAST CANCER FEMALE
     Dosage: 135 MILLIGRAM
     Route: 042
  13. CIPRALEX [Concomitant]
     Active Substance: ESCITALOPRAM OXALATE
  14. VENLAFAXINE HYDROCHLORIDE. [Concomitant]
     Active Substance: VENLAFAXINE HYDROCHLORIDE
  15. ATACAND [Concomitant]
     Active Substance: CANDESARTAN CILEXETIL
  16. ERGOCALCIFEROL. [Concomitant]
     Active Substance: ERGOCALCIFEROL
  17. ASPIRIN [ACETYLSALICYLIC ACID] [Concomitant]
     Active Substance: ASPIRIN

REACTIONS (7)
  - Barotrauma [Unknown]
  - Respiratory distress [Unknown]
  - Dyspnoea [Unknown]
  - Pneumonia [Unknown]
  - Acute respiratory distress syndrome [Unknown]
  - Overdose [Unknown]
  - Pyrexia [Unknown]
